FAERS Safety Report 4348570-6 (Version None)
Quarter: 2004Q2

REPORT INFORMATION
  Report Type: 
  Country: None (occurrence: None)
  Receive Date: 20040422
  Receipt Date: 20040419
  Transmission Date: 20050107
  Serious: Yes (Other)
  Sender: FDA-Public Use
  Company Number: IT-SHR-04-024136

PATIENT
  Age: 63 Year
  Sex: Female

DRUGS (1)
  1. ULTRAVIST 300 [Suspect]
     Dosage: 170 ML, 1 DOSE, INTRAVENOUS
     Route: 042
     Dates: start: 20040329, end: 20040329

REACTIONS (3)
  - CARDIO-RESPIRATORY DISTRESS [None]
  - DYSPNOEA [None]
  - ERYTHEMA [None]
